FAERS Safety Report 4602464-7 (Version None)
Quarter: 2005Q1

REPORT INFORMATION
  Report Type: 
  Country: None (occurrence: None)
  Receive Date: 20050309
  Receipt Date: 20050228
  Transmission Date: 20050727
  Serious: Yes (Hospitalization)
  Sender: FDA-Public Use
  Company Number: US-ABBOTT-05P-163-0292323-00

PATIENT
  Sex: Male

DRUGS (7)
  1. HUMIRA [Suspect]
     Indication: RHEUMATOID ARTHRITIS
     Route: 058
     Dates: start: 20040101, end: 20041101
  2. ANTIBIOTICS [Suspect]
     Indication: BONE INFECTION
     Route: 042
     Dates: start: 20041101, end: 20041101
  3. LEFLUNOMIDE [Concomitant]
     Indication: DRUG USE FOR UNKNOWN INDICATION
  4. PREDNISONE [Concomitant]
     Indication: RHEUMATOID ARTHRITIS
  5. RANITIDINE HYDROCHLORIDE [Concomitant]
     Indication: DRUG USE FOR UNKNOWN INDICATION
     Route: 048
  6. FUROSEMIDE [Concomitant]
     Indication: SWELLING
  7. VICODIN [Concomitant]
     Indication: PAIN

REACTIONS (4)
  - ANAPHYLACTIC REACTION [None]
  - BONE INFECTION [None]
  - CHEST PAIN [None]
  - SKIN ULCER [None]
